FAERS Safety Report 20851672 (Version 1)
Quarter: 2022Q2

REPORT INFORMATION
  Report Type: Spontaneous
  Country: FR (occurrence: FR)
  Receive Date: 20220520
  Receipt Date: 20220520
  Transmission Date: 20220721
  Serious: Yes (Hospitalization)
  Sender: FDA-Public Use
  Company Number: None

PATIENT
  Age: 63 Year
  Sex: Male
  Weight: 79.5 kg

DRUGS (1)
  1. BOSENTAN [Suspect]
     Active Substance: BOSENTAN
     Indication: Pulmonary arterial hypertension
     Dosage: 250 MILLIGRAM DAILY; 125 MG 1-0-1
     Route: 048
     Dates: start: 20220204, end: 20220321

REACTIONS (1)
  - Metabolic encephalopathy [Recovering/Resolving]

NARRATIVE: CASE EVENT DATE: 20220318
